FAERS Safety Report 4463934-8 (Version None)
Quarter: 2004Q4

REPORT INFORMATION
  Report Type: 
  Country: None (occurrence: None)
  Receive Date: 20041001
  Receipt Date: 20040803
  Transmission Date: 20050328
  Serious: Yes (Other)
  Sender: FDA-Public Use
  Company Number: US-AMGEN-US086000

PATIENT
  Sex: Male

DRUGS (2)
  1. ENBREL [Suspect]
     Indication: PSORIASIS
     Route: 058
     Dates: start: 20040423, end: 20040802
  2. NAPROSYN [Concomitant]

REACTIONS (2)
  - LYMPHOMATOID PAPULOSIS [None]
  - PITYRIASIS LICHENOIDES ET VARIOLIFORMIS ACUTA [None]
